FAERS Safety Report 11923134 (Version 21)
Quarter: 2020Q4

REPORT INFORMATION
  Report Type: Other
  Country: CA (occurrence: CA)
  Receive Date: 20160117
  Receipt Date: 20201109
  Transmission Date: 20210113
  Serious: Yes (Other)
  Sender: FDA-Public Use
  Company Number: CA-ROCHE-1359520

PATIENT
  Age: 79 Year
  Sex: Female
  Weight: 64 kg

DRUGS (18)
  1. ACTEMRA [Suspect]
     Active Substance: TOCILIZUMAB
     Route: 042
     Dates: start: 20141120
  2. ACTEMRA [Suspect]
     Active Substance: TOCILIZUMAB
     Route: 042
     Dates: start: 20160602, end: 20161117
  3. FOLIC ACID. [Concomitant]
     Active Substance: FOLIC ACID
  4. RISEDRONATE [Concomitant]
     Active Substance: RISEDRONATE SODIUM
  5. ACTEMRA [Suspect]
     Active Substance: TOCILIZUMAB
     Route: 042
     Dates: start: 20141217, end: 20150408
  6. PREDNISONE. [Concomitant]
     Active Substance: PREDNISONE
  7. ACTEMRA [Suspect]
     Active Substance: TOCILIZUMAB
     Indication: GIANT CELL ARTERITIS
     Route: 042
     Dates: start: 20131008, end: 20140604
  8. ACTEMRA [Suspect]
     Active Substance: TOCILIZUMAB
     Route: 042
     Dates: start: 20190710
  9. ACTEMRA [Suspect]
     Active Substance: TOCILIZUMAB
     Route: 042
     Dates: start: 20150506, end: 20160427
  10. ASPIRIN. [Concomitant]
     Active Substance: ASPIRIN
  11. CORTISONE [Suspect]
     Active Substance: CORTISONE
     Indication: PRODUCT USED FOR UNKNOWN INDICATION
     Route: 065
  12. METHOTREXATE. [Concomitant]
     Active Substance: METHOTREXATE
  13. ACTEMRA [Suspect]
     Active Substance: TOCILIZUMAB
     Route: 042
     Dates: start: 20140702, end: 20141120
  14. ACTEMRA [Suspect]
     Active Substance: TOCILIZUMAB
     Route: 042
     Dates: start: 20190111
  15. ACTEMRA [Suspect]
     Active Substance: TOCILIZUMAB
     Route: 042
     Dates: start: 20150506, end: 20171018
  16. ACTEMRA [Suspect]
     Active Substance: TOCILIZUMAB
     Route: 042
     Dates: start: 20180809
  17. ACTEMRA [Suspect]
     Active Substance: TOCILIZUMAB
     Route: 042
     Dates: start: 20170112, end: 20171018
  18. SULFATRIM [Concomitant]
     Active Substance: SULFAMETHOXAZOLE\TRIMETHOPRIM

REACTIONS (24)
  - Weight decreased [Not Recovered/Not Resolved]
  - Anxiety [Unknown]
  - Nervousness [Unknown]
  - Gastroenteritis viral [Not Recovered/Not Resolved]
  - Off label use [Unknown]
  - Oedema peripheral [Not Recovered/Not Resolved]
  - Blood pressure diastolic decreased [Unknown]
  - Tooth fracture [Unknown]
  - Blood pressure increased [Unknown]
  - Infusion related reaction [Unknown]
  - Pain [Unknown]
  - Oxygen saturation decreased [Unknown]
  - Blood cholesterol increased [Unknown]
  - Blood pressure fluctuation [Unknown]
  - Hypertension [Recovering/Resolving]
  - Blood pressure systolic abnormal [Unknown]
  - Joint stiffness [Unknown]
  - Infusion related reaction [Unknown]
  - Intentional product use issue [Unknown]
  - Blood pressure increased [Unknown]
  - Heart rate increased [Not Recovered/Not Resolved]
  - Oxygen saturation decreased [Unknown]
  - Rheumatoid arthritis [Unknown]
  - C-reactive protein increased [Unknown]

NARRATIVE: CASE EVENT DATE: 2014
